FAERS Safety Report 6703592-2 (Version None)
Quarter: 2010Q2

REPORT INFORMATION
  Report Type: 
  Country: None (occurrence: None)
  Receive Date: 20100430
  Receipt Date: 20100419
  Transmission Date: 20101027
  Serious: No
  Sender: FDA-Public Use
  Company Number: US-B.I. PHARMACEUTICALS,INC./RIDGEFIELD-2010-BP-03957BP

PATIENT
  Age: 80 Year
  Sex: Female
  Weight: 56.25 kg

DRUGS (12)
  1. SPIRIVA [Suspect]
     Dosage: 18 MCG
     Dates: end: 20100130
  2. ALLEGRA [Concomitant]
  3. COLACE [Concomitant]
  4. FOSAMAX [Concomitant]
  5. LIPITOR [Concomitant]
     Dosage: 80 MG
  6. MV [Concomitant]
  7. PLAVIX [Concomitant]
  8. VERAPAMIL ER [Concomitant]
  9. FLONASE [Concomitant]
  10. ASMANEX TWISTHALER [Concomitant]
  11. PROVENTIL [Concomitant]
  12. SYNTHROID [Concomitant]
     Dosage: 25 MCG

REACTIONS (2)
  - DYSURIA [None]
  - URINARY INCONTINENCE [None]
